FAERS Safety Report 25704860 (Version 3)
Quarter: 2025Q3

REPORT INFORMATION
  Report Type: Spontaneous
  Country: TW (occurrence: TW)
  Receive Date: 20250820
  Receipt Date: 20250905
  Transmission Date: 20251020
  Serious: Yes (Other)
  Sender: SANOFI AVENTIS
  Company Number: TW-SA-2025SA239857

PATIENT
  Age: 65 Year
  Sex: Male
  Weight: 87 kg

DRUGS (10)
  1. PRIFTIN [Suspect]
     Active Substance: RIFAPENTINE
     Dosage: 900 MG, QW
     Route: 048
     Dates: start: 20250505, end: 20250519
  2. Biso [Concomitant]
     Dates: start: 2024
  3. Biso [Concomitant]
     Dosage: 5 UNK, QD
     Dates: start: 20250117, end: 20250411
  4. PYRIDOXINE [Concomitant]
     Active Substance: PYRIDOXINE
     Indication: Exposure to communicable disease
     Dosage: 50 MG, QW
     Dates: start: 20250421, end: 20250505
  5. PYRIDOXINE [Concomitant]
     Active Substance: PYRIDOXINE
     Indication: Tuberculosis
  6. PYRIDOXINE [Concomitant]
     Active Substance: PYRIDOXINE
     Indication: Nerve injury
  7. DEXILANT [Concomitant]
     Active Substance: DEXLANSOPRAZOLE
  8. ISONIAZID [Concomitant]
     Active Substance: ISONIAZID
  9. OMEZOL [OMEPRAZOLE] [Concomitant]
  10. NOBAR [AMLODIPINE BESILATE] [Concomitant]

REACTIONS (10)
  - Tachycardia [Recovered/Resolved]
  - Pain [Recovered/Resolved]
  - Regurgitation [Recovered/Resolved]
  - Bone pain [Recovered/Resolved]
  - Hiccups [Recovered/Resolved]
  - Pruritus [Recovered/Resolved]
  - Fatigue [Recovered/Resolved]
  - Chills [Recovered/Resolved]
  - Rash [Recovered/Resolved]
  - Drug intolerance [Recovered/Resolved]

NARRATIVE: CASE EVENT DATE: 20250505
